FAERS Safety Report 12416676 (Version 1)
Quarter: 2016Q2

REPORT INFORMATION
  Report Type: Spontaneous
  Country: ES (occurrence: ES)
  Receive Date: 20160530
  Receipt Date: 20160530
  Transmission Date: 20160815
  Serious: Yes (Other)
  Sender: FDA-Public Use
  Company Number: ES-JNJFOC-20151001482

PATIENT

DRUGS (1)
  1. RISPERIDONE. [Suspect]
     Active Substance: RISPERIDONE
     Indication: SCHIZOPHRENIA
     Dosage: THE MEAN DOSE WAS 111.2 MG.
     Route: 030

REACTIONS (9)
  - Anticholinergic syndrome [Unknown]
  - Weight increased [Unknown]
  - Hyperglycaemia [Unknown]
  - Drug ineffective [Unknown]
  - Hyperprolactinaemia [Unknown]
  - Metabolic syndrome [Unknown]
  - Hypotension [Unknown]
  - Parkinsonism [Unknown]
  - Sedation [Unknown]
